FAERS Safety Report 4409908-4 (Version None)
Quarter: 2004Q3

REPORT INFORMATION
  Report Type: 
  Country: None (occurrence: None)
  Receive Date: 20040728
  Receipt Date: 20040715
  Transmission Date: 20050211
  Serious: Yes (Other)
  Sender: FDA-Public Use
  Company Number: CA-GLAXOSMITHKLINE-A0519144A

PATIENT
  Age: 16 Year
  Sex: Male

DRUGS (1)
  1. MALARONE [Suspect]
     Indication: MALARIA PROPHYLAXIS
     Route: 048
     Dates: start: 20040601, end: 20040701

REACTIONS (3)
  - BLINDNESS [None]
  - HYPERSENSITIVITY [None]
  - VISION BLURRED [None]
